FAERS Safety Report 7816657-9 (Version None)
Quarter: 2011Q4

REPORT INFORMATION
  Report Type: 
  Country: None (occurrence: None)
  Receive Date: 20111017
  Receipt Date: 20111012
  Transmission Date: 20120403
  Serious: Yes (Death, Hospitalization, Other)
  Sender: FDA-Public Use
  Company Number: JP-BAYER-2011-043657

PATIENT
  Age: 68 Year
  Sex: Male
  Weight: 70 kg

DRUGS (13)
  1. LIVACT [Concomitant]
     Indication: HEPATIC ENCEPHALOPATHY
     Dosage: DAILY DOSE 4.15 G
     Route: 048
     Dates: start: 20101215
  2. LIVACT [Concomitant]
     Dosage: UNK
     Route: 048
     Dates: start: 20110316, end: 20110324
  3. ALDACTONE [Concomitant]
     Dosage: UNK
     Route: 048
     Dates: start: 20110316, end: 20110324
  4. LIVACT [Concomitant]
     Dosage: UNK
     Route: 048
     Dates: start: 20110105, end: 20110125
  5. CARVEDILOL [Concomitant]
     Indication: HYPERTENSION
     Dosage: DAILY DOSE 20 MG
     Route: 048
     Dates: start: 19970101
  6. ADALAT [Concomitant]
     Indication: HYPERTENSION
     Dosage: DAILY DOSE 10 MG
     Route: 048
     Dates: start: 19970101
  7. NEXAVAR [Suspect]
     Indication: HEPATIC NEOPLASM MALIGNANT
     Dosage: 400 MG, QD
     Route: 048
     Dates: start: 20101201, end: 20110125
  8. LIVACT [Concomitant]
     Dosage: UNK
     Route: 048
     Dates: start: 20110209, end: 20110305
  9. RABEPRAZOLE SODIUM [Concomitant]
     Indication: ABDOMINAL PAIN UPPER
     Dosage: DAILY DOSE 10 MG
     Route: 048
     Dates: start: 19970101
  10. LASIX [Concomitant]
     Dosage: UNK
     Route: 048
     Dates: start: 20110316, end: 20110324
  11. NEXAVAR [Suspect]
     Dosage: 400 MG, QD
     Route: 048
     Dates: start: 20110209, end: 20110305
  12. NEXAVAR [Suspect]
     Dosage: 400 MG, QD
     Route: 048
     Dates: start: 20110316, end: 20110324
  13. NOVORAPID [Concomitant]
     Indication: DIABETES MELLITUS
     Dosage: 16 U, BID
     Route: 058
     Dates: start: 19970101

REACTIONS (3)
  - HEPATIC ENCEPHALOPATHY [None]
  - HEPATIC NEOPLASM MALIGNANT [None]
  - HEPATIC FAILURE [None]
